FAERS Safety Report 5598704-0 (Version None)
Quarter: 2008Q1

REPORT INFORMATION
  Report Type: 
  Country: None (occurrence: None)
  Receive Date: 20080122
  Receipt Date: 20080109
  Transmission Date: 20080703
  Serious: Yes (Hospitalization, Other)
  Sender: FDA-Public Use
  Company Number: US-KINGPHARMUSA00001-K200800027

PATIENT

DRUGS (8)
  1. ALTACE [Suspect]
     Indication: HYPERTENSION
     Dosage: 1.25 MG, QD
     Route: 048
  2. ALTACE [Suspect]
     Route: 048
  3. LASILIX /00032601/ [Suspect]
     Indication: CARDIAC FAILURE
     Dosage: 500 MG, QD
     Route: 048
  4. LASILIX /00032601/ [Suspect]
     Dosage: 250 MG, QD
     Route: 048
  5. KETEK [Concomitant]
     Indication: BRONCHITIS
     Dosage: 400 MG, UNK
     Route: 048
     Dates: start: 20070522, end: 20070526
  6. EPINITRIL [Concomitant]
     Indication: ANGINA PECTORIS
     Dosage: EVERY DAY PATCH, QD
     Route: 062
  7. BISOPROLOL FUMARATE [Concomitant]
     Indication: CARDIAC FAILURE
     Dosage: 7.5 MG, UNK
     Route: 048
  8. DIFFU K [Concomitant]
     Indication: HYPOKALAEMIA
     Dosage: 600 MG, UNK
     Route: 048

REACTIONS (6)
  - CARDIAC FAILURE CHRONIC [None]
  - DEHYDRATION [None]
  - HYPONATRAEMIA [None]
  - RENAL FAILURE CHRONIC [None]
  - RESPIRATORY FAILURE [None]
  - SUPERINFECTION [None]
